FAERS Safety Report 6676197-X (Version None)
Quarter: 2010Q2

REPORT INFORMATION
  Report Type: 
  Country: None (occurrence: None)
  Receive Date: 20100412
  Receipt Date: 20100331
  Transmission Date: 20101027
  Serious: Yes (Other)
  Sender: FDA-Public Use
  Company Number: US-JNJFOC-20100109829

PATIENT
  Sex: Female

DRUGS (2)
  1. MOTRIN IB [Suspect]
  2. MOTRIN IB [Suspect]
     Indication: HEADACHE

REACTIONS (4)
  - MIGRAINE [None]
  - NAUSEA [None]
  - PRODUCT QUALITY ISSUE [None]
  - VISION BLURRED [None]
